FAERS Safety Report 16586849 (Version 3)
Quarter: 2019Q3

REPORT INFORMATION
  Report Type: Spontaneous
  Country: US (occurrence: US)
  Receive Date: 20190717
  Receipt Date: 20190917
  Transmission Date: 20191004
  Serious: Yes (Other)
  Sender: FDA-Public Use
  Company Number: US-JNJFOC-20190704300

PATIENT
  Sex: Female

DRUGS (2)
  1. YONDELIS [Suspect]
     Active Substance: TRABECTEDIN
     Indication: PRODUCT USED FOR UNKNOWN INDICATION
  2. NEULASTA [Suspect]
     Active Substance: PEGFILGRASTIM
     Indication: PRODUCT USED FOR UNKNOWN INDICATION
     Route: 065

REACTIONS (4)
  - Adverse event [Unknown]
  - Neoplasm [Unknown]
  - Feeling abnormal [Unknown]
  - Drug ineffective [Unknown]
